FAERS Safety Report 7946623-4 (Version None)
Quarter: 2011Q4

REPORT INFORMATION
  Report Type: 
  Country: None (occurrence: None)
  Receive Date: 20111129
  Receipt Date: 20101228
  Transmission Date: 20120403
  Serious: Yes (Hospitalization)
  Sender: FDA-Public Use
  Company Number: FR-BRISTOL-MYERS SQUIBB COMPANY-16246134

PATIENT
  Age: 30 Year
  Sex: Female

DRUGS (8)
  1. CLAFORAN [Suspect]
     Indication: MENINGITIS
     Route: 042
     Dates: start: 20100901, end: 20100903
  2. FOSFOCINE [Suspect]
     Indication: MENINGITIS
     Dosage: 01-03SEP10.3 D.25SEP-27SEP10
     Route: 048
     Dates: start: 20100901, end: 20100927
  3. GENTAMICIN [Suspect]
     Indication: MENINGITIS
     Dosage: 03-07SEP10.5D.23-25SEP10
     Route: 042
     Dates: start: 20100903, end: 20100925
  4. CIPROFLOXACIN [Suspect]
     Indication: MENINGITIS
     Route: 065
     Dates: start: 20100923, end: 20100925
  5. VANCOMYCIN [Suspect]
     Indication: MENINGITIS
     Route: 042
     Dates: start: 20100903, end: 20100927
  6. VISIPAQUE [Suspect]
     Dosage: 1 DF: 1 UNIT INJ ONCE.
     Route: 042
     Dates: start: 20100921, end: 20100921
  7. AZACTAM [Suspect]
     Indication: MENINGITIS
     Dosage: 17-23SEP2010; RESTART ON 19-OCT-2010.
     Route: 042
     Dates: start: 20100917
  8. BACTRIM [Suspect]
     Indication: MENINGITIS
     Route: 065
     Dates: start: 20100917, end: 20100923

REACTIONS (1)
  - DRUG RASH WITH EOSINOPHILIA AND SYSTEMIC SYMPTOMS [None]
